FAERS Safety Report 10850986 (Version 1)
Quarter: 2015Q1

REPORT INFORMATION
  Report Type: Spontaneous
  Country: US (occurrence: US)
  Receive Date: 20150222
  Receipt Date: 20150222
  Transmission Date: 20150721
  Serious: No
  Sender: FDA-Public Use
  Company Number: US-ALLERGAN-1402057US

PATIENT
  Age: 52 Year
  Sex: Male

DRUGS (2)
  1. ZAMAFLEX [Concomitant]
     Indication: MUSCLE SPASTICITY
  2. BOTOX [Suspect]
     Active Substance: ONABOTULINUMTOXINA
     Indication: MUSCLE SPASTICITY
     Dosage: UNK, SINGLE
     Route: 030

REACTIONS (4)
  - Vision blurred [Unknown]
  - Dysphonia [Unknown]
  - Hypoaesthesia [Unknown]
  - Myalgia [Unknown]
